FAERS Safety Report 22878508 (Version 3)
Quarter: 2023Q4

REPORT INFORMATION
  Report Type: Report from Study
  Country: CN (occurrence: CN)
  Receive Date: 20230829
  Receipt Date: 20231121
  Transmission Date: 20240110
  Serious: Yes (Hospitalization, Other)
  Sender: FDA-Public Use
  Company Number: CN-BRISTOL-MYERS SQUIBB COMPANY-2023-109207

PATIENT
  Age: 65 Year
  Sex: Male
  Weight: 43 kg

DRUGS (9)
  1. NIVOLUMAB [Suspect]
     Active Substance: NIVOLUMAB
     Indication: Adenocarcinoma gastric
     Route: 042
     Dates: start: 20221208, end: 20221208
  2. NIVOLUMAB [Suspect]
     Active Substance: NIVOLUMAB
     Route: 042
     Dates: start: 20230704, end: 20230704
  3. OXALIPLATIN [Suspect]
     Active Substance: OXALIPLATIN
     Indication: Adenocarcinoma gastric
     Route: 042
     Dates: start: 20221208, end: 20221208
  4. OXALIPLATIN [Suspect]
     Active Substance: OXALIPLATIN
     Route: 042
     Dates: start: 20230525, end: 20230525
  5. CAPECITABINE [Suspect]
     Active Substance: CAPECITABINE
     Indication: Adenocarcinoma gastric
     Dosage: TWICE DAILY (BID), DAYS 1-14 OF EACH 3-WEEK AS A CYCLE
     Route: 048
     Dates: start: 20221208
  6. CAPECITABINE [Suspect]
     Active Substance: CAPECITABINE
     Dosage: TWICE DAILY (BID), DAYS 1-14 OF EACH 3-WEEK AS A CYCLE
     Route: 048
     Dates: start: 20230704, end: 20230718
  7. TST-001 [Suspect]
     Active Substance: TST-001
     Indication: Adenocarcinoma gastric
     Route: 042
     Dates: start: 20221208, end: 20221208
  8. TST-001 [Suspect]
     Active Substance: TST-001
     Route: 042
     Dates: start: 20230704, end: 20230704
  9. SHENG XUE NING [Concomitant]
     Indication: Anaemia
     Dosage: SHENG XUE NING PIAN
     Route: 048
     Dates: start: 20230409

REACTIONS (1)
  - Immune-mediated enterocolitis [Recovered/Resolved]

NARRATIVE: CASE EVENT DATE: 20230726
